FAERS Safety Report 8810067 (Version 1)
Quarter: 2012Q4

REPORT INFORMATION
  Report Type: 
  Country: HU (occurrence: HU)
  Receive Date: 20120926
  Receipt Date: 20120926
  Transmission Date: 20130627
  Serious: Yes (Hospitalization)
  Sender: FDA-Public Use
  Company Number: HU-GLAXOSMITHKLINE-B0832962A

PATIENT
  Age: 77 Year
  Sex: Female

DRUGS (2)
  1. SERETIDE DISKUS [Suspect]
     Indication: PRODUCT USED FOR UNKNOWN INDICATION
     Route: 055
     Dates: start: 201207
  2. UNSPECIFIED MEDICATION [Concomitant]
     Indication: BLOOD PRESSURE
     Route: 065
     Dates: start: 2012

REACTIONS (1)
  - Joint swelling [Recovered/Resolved]
